FAERS Safety Report 23964803 (Version 2)
Quarter: 2024Q3

REPORT INFORMATION
  Report Type: Spontaneous
  Country: PE (occurrence: PE)
  Receive Date: 20240612
  Receipt Date: 20240709
  Transmission Date: 20241017
  Serious: Yes (Other)
  Sender: ROCHE
  Company Number: PE-ROCHE-3579150

PATIENT
  Sex: Female

DRUGS (1)
  1. AVASTIN [Suspect]
     Active Substance: BEVACIZUMAB
     Indication: Glioblastoma
     Dosage: DOSE AND FREQUENCY WERE NOT REPORTED
     Route: 065
     Dates: start: 2022

REACTIONS (2)
  - Drug ineffective [Unknown]
  - Neoplasm progression [Not Recovered/Not Resolved]

NARRATIVE: CASE EVENT DATE: 20230801
